FAERS Safety Report 10802221 (Version 1)
Quarter: 2015Q1

REPORT INFORMATION
  Report Type: Spontaneous
  Country: US (occurrence: US)
  Receive Date: 20150217
  Receipt Date: 20150217
  Transmission Date: 20150721
  Serious: No
  Sender: FDA-Public Use
  Company Number: US-SA-2015SA011459

PATIENT
  Sex: Male

DRUGS (4)
  1. BENZYL BENZOATE [Concomitant]
     Active Substance: BENZYL BENZOATE
  2. PERMETHRIN. [Concomitant]
     Active Substance: PERMETHRIN
  3. CIPRO [Concomitant]
     Active Substance: CIPROFLOXACIN HYDROCHLORIDE
  4. SKLICE [Suspect]
     Active Substance: IVERMECTIN
     Indication: INFECTION PARASITIC
     Dosage: USED ONCE FOR 10 MIN, USED AGAIN AND LEFT ON FOR 3 HRS, AND THEN FOR 24 HRS
     Route: 061

REACTIONS (3)
  - Intentional product misuse [Unknown]
  - Dysuria [Not Recovered/Not Resolved]
  - Abdominal pain lower [Not Recovered/Not Resolved]
